FAERS Safety Report 6703258-9 (Version None)
Quarter: 2010Q2

REPORT INFORMATION
  Report Type: 
  Country: None (occurrence: None)
  Receive Date: 20100428
  Receipt Date: 20100413
  Transmission Date: 20101027
  Serious: Yes (Other)
  Sender: FDA-Public Use
  Company Number: 2009002241

PATIENT
  Age: 68 Year
  Sex: Female
  Weight: 43.8 kg

DRUGS (2)
  1. ERLOTINIB       (ERLOTINIB) (TABLET) (ERLOTINIB) [Suspect]
     Indication: LUNG NEOPLASM MALIGNANT
     Dosage: (150 MG, QD), ORAL
     Route: 048
     Dates: start: 20081128
  2. BIOFERMIN (BIOFERMIN) [Concomitant]

REACTIONS (1)
  - HENOCH-SCHONLEIN PURPURA [None]
